FAERS Safety Report 7451951-5 (Version None)
Quarter: 2011Q2

REPORT INFORMATION
  Report Type: 
  Country: None (occurrence: None)
  Receive Date: 20110502
  Receipt Date: 20110419
  Transmission Date: 20111010
  Serious: No
  Sender: FDA-Public Use
  Company Number: US-B.I. PHARMACEUTICALS,INC./RIDGEFIELD-2011-BP-11286BP

PATIENT
  Sex: Female

DRUGS (5)
  1. ADVAIR DISKUS 100/50 [Concomitant]
     Indication: ASTHMA
  2. LOTENSION [Concomitant]
     Indication: HYPERTENSION
     Dosage: 10 MG
  3. SPIRIVA [Suspect]
     Indication: CHRONIC OBSTRUCTIVE PULMONARY DISEASE
     Dosage: 18 MCG
     Route: 055
     Dates: start: 20110413, end: 20110417
  4. DYAZIDE [Concomitant]
     Indication: HYPERTENSION
     Dosage: 37.5 MG
  5. HYTRIN [Concomitant]
     Indication: HYPERTENSION
     Dosage: 4 MG

REACTIONS (3)
  - OROPHARYNGEAL PAIN [None]
  - DRY MOUTH [None]
  - COUGH [None]
